FAERS Safety Report 8156133-X (Version None)
Quarter: 2012Q1

REPORT INFORMATION
  Report Type: 
  Country: None (occurrence: None)
  Receive Date: 20120222
  Receipt Date: 20120214
  Transmission Date: 20120608
  Serious: Yes (Hospitalization, Other)
  Sender: FDA-Public Use
  Company Number: JP-JNJFOC-20111211861

PATIENT
  Age: 16 Year
  Sex: Female

DRUGS (10)
  1. RISPERDAL [Suspect]
     Indication: MANIA
     Route: 048
  2. RISPERIDONE [Suspect]
     Indication: HALLUCINATION, AUDITORY
     Route: 048
  3. RISPERIDONE [Suspect]
     Indication: DELUSION
     Route: 048
  4. PREDNISOLONE [Concomitant]
     Route: 065
  5. OLANZAPINE [Concomitant]
     Route: 048
  6. VALPROATE SODIUM [Concomitant]
     Route: 048
  7. RISPERDAL [Suspect]
     Indication: HALLUCINATION, AUDITORY
     Route: 048
  8. RISPERDAL [Suspect]
     Indication: DELUSION
     Route: 048
  9. RISPERIDONE [Suspect]
     Indication: MANIA
     Route: 048
  10. QUETIAPINE FUMARATE [Concomitant]
     Route: 048

REACTIONS (5)
  - DYSTONIA [None]
  - UNEVALUABLE EVENT [None]
  - SYSTEMIC LUPUS ERYTHEMATOSUS [None]
  - DRUG INEFFECTIVE [None]
  - AKINESIA [None]
